FAERS Safety Report 7547568-4 (Version None)
Quarter: 2011Q2

REPORT INFORMATION
  Report Type: 
  Country: None (occurrence: None)
  Receive Date: 20110614
  Receipt Date: 20110609
  Transmission Date: 20111010
  Serious: Yes (Death)
  Sender: FDA-Public Use
  Company Number: PHHY2011DE51068

PATIENT
  Age: 56 Year

DRUGS (2)
  1. CYCLOSPORINE [Suspect]
     Indication: PROPHYLAXIS AGAINST GRAFT VERSUS HOST DISEASE
  2. PENTOSTATIN [Concomitant]

REACTIONS (1)
  - ACUTE MYELOID LEUKAEMIA RECURRENT [None]
